FAERS Safety Report 20578862 (Version 2)
Quarter: 2022Q1

REPORT INFORMATION
  Report Type: Spontaneous
  Country: TW (occurrence: TW)
  Receive Date: 20220310
  Receipt Date: 20220321
  Transmission Date: 20220424
  Serious: Yes (Other)
  Sender: FDA-Public Use
  Company Number: TW-ALXN-A202203188

PATIENT
  Age: 14 Year
  Sex: Male

DRUGS (3)
  1. SOLIRIS [Suspect]
     Active Substance: ECULIZUMAB
     Indication: Atypical haemolytic uraemic syndrome
     Dosage: 600 MG, QW
     Route: 042
     Dates: start: 20220113
  2. SOLIRIS [Suspect]
     Active Substance: ECULIZUMAB
     Dosage: 900 MG, QW
     Route: 065
  3. SOLIRIS [Suspect]
     Active Substance: ECULIZUMAB
     Dosage: 900 MG, Q2W
     Route: 065

REACTIONS (3)
  - Blindness [Unknown]
  - Fall [Unknown]
  - Photopsia [Unknown]

NARRATIVE: CASE EVENT DATE: 20220217
